FAERS Safety Report 21445688 (Version 1)
Quarter: 2022Q4

REPORT INFORMATION
  Report Type: Spontaneous
  Country: JP (occurrence: JP)
  Receive Date: 20221012
  Receipt Date: 20221012
  Transmission Date: 20230112
  Serious: Yes (Hospitalization)
  Sender: FDA-Public Use
  Company Number: JP-GUERBETG-JP-20220154

PATIENT
  Age: 13 Year
  Sex: Female

DRUGS (2)
  1. LIPIODOL [Suspect]
     Active Substance: ETHIODIZED OIL
     Indication: Therapeutic embolisation
     Dosage: MIXED WITH NBCA
     Route: 065
  2. ENBUCRILATE [Concomitant]
     Active Substance: ENBUCRILATE
     Indication: Therapeutic embolisation
     Dosage: MIXED WITH LIPIODOL
     Route: 065

REACTIONS (7)
  - C-reactive protein increased [Unknown]
  - Urine output decreased [Unknown]
  - Oedema [Recovering/Resolving]
  - Ascites [Unknown]
  - Blood pressure decreased [Unknown]
  - Respiratory failure [Unknown]
  - Product use in unapproved indication [Unknown]
